FAERS Safety Report 20870810 (Version 1)
Quarter: 2022Q2

REPORT INFORMATION
  Report Type: Report from Study
  Country: US (occurrence: US)
  Receive Date: 20220525
  Receipt Date: 20220525
  Transmission Date: 20220721
  Serious: Yes (Other)
  Sender: FDA-Public Use
  Company Number: US-BRISTOL-MYERS SQUIBB COMPANY-2022-039499

PATIENT
  Age: 57 Year
  Sex: Male
  Weight: 92.98 kg

DRUGS (1)
  1. POMALYST [Suspect]
     Active Substance: POMALIDOMIDE
     Indication: Plasma cell myeloma
     Dosage: DAYS 1-21. OFF 7 DAYS.
     Route: 048

REACTIONS (3)
  - Nervous system disorder [Unknown]
  - Pain [Unknown]
  - Hypoaesthesia [Unknown]
